FAERS Safety Report 22750814 (Version 2)
Quarter: 2024Q1

REPORT INFORMATION
  Report Type: Report from Study
  Country: IN (occurrence: IN)
  Receive Date: 20230726
  Receipt Date: 20240315
  Transmission Date: 20240410
  Serious: Yes (Other)
  Sender: FDA-Public Use
  Company Number: IN-002147023-NVSC2023IN070737

PATIENT
  Sex: Male

DRUGS (6)
  1. TASIGNA [Suspect]
     Active Substance: NILOTINIB
     Indication: Chronic myeloid leukaemia
     Dosage: 400 MG, BID
     Route: 048
     Dates: start: 20180628
  2. TASIGNA [Suspect]
     Active Substance: NILOTINIB
     Dosage: 400 MG, BID
     Route: 048
     Dates: start: 20180705
  3. LEVOTHYROXINE [Concomitant]
     Active Substance: LEVOTHYROXINE\LEVOTHYROXINE SODIUM
     Indication: Thyroid disorder
     Dosage: 100 MG, QD
     Route: 048
     Dates: start: 2021
  4. GABAPIN NT [Concomitant]
     Indication: Pain
     Dosage: 200 MG, QD
     Route: 048
     Dates: start: 202304
  5. PREGABALIN [Concomitant]
     Active Substance: PREGABALIN
     Indication: Pain
     Dosage: 75 MG/HS
     Route: 048
     Dates: start: 202304
  6. MOBIZOX [Concomitant]
     Indication: Pain
     Dosage: 1 MG/TDS
     Route: 048
     Dates: start: 202304

REACTIONS (5)
  - Back pain [Unknown]
  - Hypothyroidism [Not Recovered/Not Resolved]
  - Obesity [Not Recovered/Not Resolved]
  - Platelet count decreased [Unknown]
  - Haemoglobin decreased [Unknown]

NARRATIVE: CASE EVENT DATE: 20210101
